FAERS Safety Report 15292911 (Version 1)
Quarter: 2018Q3

REPORT INFORMATION
  Report Type: Spontaneous
  Country: US (occurrence: US)
  Receive Date: 20180806
  Receipt Date: 20180806
  Transmission Date: 20181010
  Serious: Yes (Disabling)
  Sender: FDA-Public Use
  Company Number: None

PATIENT
  Age: 32 Year
  Sex: Female

DRUGS (3)
  1. AZATHAPRINE [Concomitant]
  2. REMICADE [Suspect]
     Active Substance: INFLIXIMAB
     Indication: CROHN^S DISEASE
     Dosage: ?          OTHER FREQUENCY:EVERY 8 WEEKS;?
     Route: 042
     Dates: start: 20161111, end: 20170210
  3. HUMIRA [Suspect]
     Active Substance: ADALIMUMAB
     Indication: CROHN^S DISEASE
     Dates: start: 20160311, end: 20161014

REACTIONS (6)
  - Lupus-like syndrome [None]
  - Fluid retention [None]
  - Peripheral swelling [None]
  - Scab [None]
  - Alopecia [None]
  - Dyspnoea [None]

NARRATIVE: CASE EVENT DATE: 20161111
